FAERS Safety Report 26061080 (Version 1)
Quarter: 2025Q4

REPORT INFORMATION
  Report Type: Spontaneous
  Country: JP (occurrence: JP)
  Receive Date: 20251118
  Receipt Date: 20251118
  Transmission Date: 20260117
  Serious: Yes (Other)
  Sender: MERCK SHARP & DOHME LLC
  Company Number: JP-009507513-2295310

PATIENT
  Age: 7 Decade
  Sex: Female

DRUGS (4)
  1. KEYTRUDA [Suspect]
     Active Substance: PEMBROLIZUMAB
     Indication: Uterine cancer
     Route: 041
     Dates: start: 20250407, end: 202510
  2. KEYTRUDA [Suspect]
     Active Substance: PEMBROLIZUMAB
     Indication: Uterine cancer
     Dosage: 1 COURSE
     Route: 041
     Dates: start: 2025
  3. LENVIMA [Suspect]
     Active Substance: LENVATINIB
     Indication: Uterine cancer
     Route: 048
     Dates: start: 20250407, end: 202510
  4. LENVIMA [Suspect]
     Active Substance: LENVATINIB
     Indication: Uterine cancer
     Dosage: 1 COURSE
     Route: 048
     Dates: start: 2025

REACTIONS (4)
  - Malignant neoplasm progression [Unknown]
  - Febrile neutropenia [Unknown]
  - Diarrhoea [Recovered/Resolved]
  - Immune-mediated hypothyroidism [Recovered/Resolved]

NARRATIVE: CASE EVENT DATE: 20250101
